FAERS Safety Report 22114959 (Version 4)
Quarter: 2023Q2

REPORT INFORMATION
  Report Type: Spontaneous
  Country: US (occurrence: US)
  Receive Date: 20230320
  Receipt Date: 20230502
  Transmission Date: 20230721
  Serious: No
  Sender: FDA-Public Use
  Company Number: US-PFIZER INC-202300112496

PATIENT
  Age: 9 Year
  Sex: Male
  Weight: 18.8 kg

DRUGS (1)
  1. GENOTROPIN [Suspect]
     Active Substance: SOMATROPIN
     Dosage: 0.8 MG, DAILY

REACTIONS (8)
  - Incorrect dose administered by device [Unknown]
  - Device delivery system issue [Unknown]
  - Device information output issue [Unknown]
  - Device issue [Unknown]
  - Extra dose administered [Unknown]
  - Device leakage [Unknown]
  - Accidental exposure to product [Unknown]
  - Exposure via skin contact [Unknown]
